FAERS Safety Report 23493978 (Version 3)
Quarter: 2024Q2

REPORT INFORMATION
  Report Type: Spontaneous
  Country: US (occurrence: US)
  Receive Date: 20240207
  Receipt Date: 20240430
  Transmission Date: 20240716
  Serious: No
  Sender: FDA-Public Use
  Company Number: US-PFIZER INC-202400016095

PATIENT
  Age: 6 Year
  Sex: Female

DRUGS (1)
  1. GENOTROPIN [Suspect]
     Active Substance: SOMATROPIN
     Indication: Growth hormone deficiency
     Dosage: 0.8 UNITS EVERY DAY AT NIGHT IN WOULD SAY THIGH, BUTT OR ARM ROTATING INJECTION SITES
     Dates: start: 202208

REACTIONS (3)
  - Poor quality device used [Unknown]
  - Device physical property issue [Unknown]
  - Drug dose omission by device [Unknown]
